FAERS Safety Report 7693861-4 (Version None)
Quarter: 2011Q3

REPORT INFORMATION
  Report Type: 
  Country: None (occurrence: None)
  Receive Date: 20110815
  Receipt Date: 20110805
  Transmission Date: 20111222
  Serious: Yes (Other)
  Sender: FDA-Public Use
  Company Number: US-005656

PATIENT
  Sex: Female

DRUGS (2)
  1. TEV-TROPIN [Suspect]
     Indication: GROWTH HORMONE DEFICIENCY
     Dosage: (1.2 MG QD SUBCUTANEOUS)
     Route: 058
     Dates: start: 20080412, end: 20110531
  2. INCRELEX [Concomitant]

REACTIONS (2)
  - JAW DISORDER [None]
  - FIBROMA [None]
